FAERS Safety Report 9735461 (Version 1)
Quarter: 2013Q4

REPORT INFORMATION
  Report Type: Spontaneous
  Country: US (occurrence: US)
  Receive Date: 20131206
  Receipt Date: 20131206
  Transmission Date: 20140711
  Serious: No
  Sender: FDA-Public Use
  Company Number: US-GILEAD-2009-0023214

PATIENT
  Sex: Male
  Weight: 72.57 kg

DRUGS (18)
  1. LETAIRIS [Suspect]
     Indication: PULMONARY ARTERIAL HYPERTENSION
     Route: 048
     Dates: start: 20090716
  2. REVATIO [Concomitant]
  3. VIAGRA [Concomitant]
  4. TAZTIA XT [Concomitant]
  5. CARTIA XT [Concomitant]
  6. CARDIZEM [Concomitant]
  7. ZESTRIL [Concomitant]
  8. LISINOPRIL [Concomitant]
  9. CARVEDILOL [Concomitant]
  10. MINOXIDIL [Concomitant]
  11. ASPIRIN [Concomitant]
  12. COUMADIN [Concomitant]
  13. ATROVENT [Concomitant]
  14. ALBUTEROL [Concomitant]
  15. OXYGEN [Concomitant]
  16. PRED FORTE [Concomitant]
  17. LYNOX [Concomitant]
  18. RENAGEL [Concomitant]

REACTIONS (1)
  - Hypersomnia [Unknown]
